FAERS Safety Report 14140926 (Version 1)
Quarter: 2017Q4

REPORT INFORMATION
  Report Type: Spontaneous
  Country: TH (occurrence: TH)
  Receive Date: 20171030
  Receipt Date: 20171030
  Transmission Date: 20180321
  Serious: Yes (Other)
  Sender: FDA-Public Use
  Company Number: PHHY2017TH153522

PATIENT
  Age: 72 Year
  Sex: Male

DRUGS (1)
  1. ATROPINE SULFATE. [Suspect]
     Active Substance: ATROPINE SULFATE
     Indication: PRODUCT USED FOR UNKNOWN INDICATION
     Dosage: UNK UNK, BID
     Route: 047
     Dates: start: 20170904

REACTIONS (6)
  - Choroidal detachment [Unknown]
  - Choroidal effusion [Unknown]
  - Corneal oedema [Unknown]
  - Intraocular pressure increased [Unknown]
  - Choroidal haemorrhage [Unknown]
  - Flat anterior chamber of eye [Unknown]

NARRATIVE: CASE EVENT DATE: 20170914
